FAERS Safety Report 12328725 (Version 1)
Quarter: 2016Q2

REPORT INFORMATION
  Report Type: Spontaneous
  Country: US (occurrence: US)
  Receive Date: 20160503
  Receipt Date: 20160503
  Transmission Date: 20160815
  Serious: No
  Sender: FDA-Public Use
  Company Number: US-BEH-2015050377

PATIENT
  Sex: Female
  Weight: 54 kg

DRUGS (30)
  1. CLINDAMYCIN [Concomitant]
     Active Substance: CLINDAMYCIN\CLINDAMYCIN PHOSPHATE
  2. SYMBICORT [Concomitant]
     Active Substance: BUDESONIDE\FORMOTEROL FUMARATE DIHYDRATE
  3. HIZENTRA [Suspect]
     Active Substance: HUMAN IMMUNOGLOBULIN G
     Indication: BLOOD IMMUNOGLOBULIN G DECREASED
     Route: 058
  4. HIZENTRA [Suspect]
     Active Substance: HUMAN IMMUNOGLOBULIN G
     Indication: IMMUNOGLOBULINS DECREASED
     Route: 058
  5. LIPITOR [Concomitant]
     Active Substance: ATORVASTATIN CALCIUM
  6. TOPIRAMATE. [Concomitant]
     Active Substance: TOPIRAMATE
  7. MILK OF MAGNESIA [Concomitant]
     Active Substance: MAGNESIUM HYDROXIDE
  8. LMX [Concomitant]
     Active Substance: LIDOCAINE
  9. OMEPRAZOLE. [Concomitant]
     Active Substance: OMEPRAZOLE
  10. HYDROCODONE BITARTRATE AND ACETAMINOPHEN [Concomitant]
     Active Substance: ACETAMINOPHEN\HYDROCODONE BITARTRATE
  11. SPIRIVA [Concomitant]
     Active Substance: TIOTROPIUM BROMIDE MONOHYDRATE
  12. CALCIUM [Concomitant]
     Active Substance: CALCIUM
  13. EPIPEN [Concomitant]
     Active Substance: EPINEPHRINE
  14. BUTAL-ASA- CAF [Concomitant]
  15. ESTRACE [Concomitant]
     Active Substance: ESTRADIOL
  16. MULTIVITAMIN [Concomitant]
     Active Substance: VITAMINS
  17. VITAMIN D [Concomitant]
     Active Substance: CHOLECALCIFEROL
  18. NITROSTAT [Concomitant]
     Active Substance: NITROGLYCERIN
  19. ALBUTEROL. [Concomitant]
     Active Substance: ALBUTEROL
  20. BACTIRACIN/GENTAMYCIN [Concomitant]
  21. DIPHENHYDRAMINE. [Concomitant]
     Active Substance: DIPHENHYDRAMINE
  22. AUGMENTIN [Concomitant]
     Active Substance: AMOXICILLIN\CLAVULANATE POTASSIUM
  23. EVISTA [Concomitant]
     Active Substance: RALOXIFENE HYDROCHLORIDE
  24. PROMETHAZINE [Concomitant]
     Active Substance: PROMETHAZINE\PROMETHAZINE HYDROCHLORIDE
  25. CYCLOBENZAPRIL [Concomitant]
  26. ASPIRIN. [Concomitant]
     Active Substance: ASPIRIN
  27. PROAIR HFA [Concomitant]
     Active Substance: ALBUTEROL SULFATE
  28. LEVAQUIN [Concomitant]
     Active Substance: LEVOFLOXACIN
  29. SIMVASTATIN. [Concomitant]
     Active Substance: SIMVASTATIN
  30. SINGULAIR [Concomitant]
     Active Substance: MONTELUKAST SODIUM

REACTIONS (2)
  - Urinary tract infection [Unknown]
  - Administration site swelling [Unknown]
